FAERS Safety Report 9451410 (Version 2)
Quarter: 2013Q3

REPORT INFORMATION
  Report Type: Report from Study
  Country: US (occurrence: US)
  Receive Date: 20130809
  Receipt Date: 20130816
  Transmission Date: 20140515
  Serious: Yes (Hospitalization, Other)
  Sender: FDA-Public Use
  Company Number: US-ABBOTT-13P-163-1120072-00

PATIENT
  Age: 58 Year
  Sex: Female

DRUGS (21)
  1. HUMIRA [Suspect]
     Indication: COLITIS ULCERATIVE
     Dosage: EVERY TWO WEEKS
     Dates: start: 20130406
  2. HUMIRA [Suspect]
     Dosage: WEEKLY
     Dates: start: 20130706
  3. XANAX [Concomitant]
     Indication: ANXIETY
  4. DISOPROLOL HYDROCHLOROTHIAZIDE [Concomitant]
     Indication: HYPERTENSION
     Dosage: 10 MG DAILY
  5. BUSPAR [Concomitant]
     Indication: ANXIETY
  6. GEMFIBROZIL [Concomitant]
     Indication: BLOOD CHOLESTEROL
     Route: 048
  7. LORATADINE [Concomitant]
     Indication: SEASONAL ALLERGY
     Dosage: 10 MG DAILY
  8. METFORMIN [Concomitant]
     Indication: INSULIN RESISTANCE
  9. NIACIN [Concomitant]
     Indication: BLOOD CHOLESTEROL
  10. PREDNISONE [Concomitant]
     Indication: COLITIS ULCERATIVE
     Dosage: WEANING OFF, DOWN TO 15 MG PER DAY
  11. PREDNISONE [Concomitant]
     Route: 048
  12. DICYCLOMINE [Concomitant]
     Indication: ABDOMINAL PAIN
  13. MESALAMINE [Concomitant]
     Indication: COLITIS ULCERATIVE
  14. TRAMADOL [Concomitant]
     Indication: COLITIS ULCERATIVE
  15. FLUCONAZOLE [Concomitant]
     Indication: CANDIDA INFECTION
     Dosage: 200 MG DAILY
  16. ZIAC [Concomitant]
     Indication: HYPERTENSION
  17. BUSPAR [Concomitant]
     Indication: ANXIETY
  18. MULTIVITAMIN [Concomitant]
     Indication: PRODUCT USED FOR UNKNOWN INDICATION
  19. PREDNISONE [Concomitant]
     Indication: COLITIS ULCERATIVE
     Dosage: 40MG DAILY
  20. CANASA [Concomitant]
     Indication: COLITIS ULCERATIVE
     Dosage: AT BEDTIME
  21. EFFEXOR [Concomitant]
     Indication: DEPRESSION

REACTIONS (14)
  - Oropharyngeal pain [Recovering/Resolving]
  - Candida infection [Recovering/Resolving]
  - Platelet count increased [Recovering/Resolving]
  - Injection site pain [Not Recovered/Not Resolved]
  - Colitis ulcerative [Recovering/Resolving]
  - Pyrexia [Unknown]
  - Chills [Unknown]
  - Diarrhoea [Unknown]
  - Throat irritation [Recovering/Resolving]
  - Abdominal pain lower [Recovering/Resolving]
  - Proctalgia [Recovering/Resolving]
  - Stress [Recovering/Resolving]
  - Colitis ulcerative [Unknown]
  - Thrombocytosis [Unknown]
